FAERS Safety Report 13657069 (Version 2)
Quarter: 2017Q2

REPORT INFORMATION
  Report Type: Report from Study
  Country: CO (occurrence: CO)
  Receive Date: 20170615
  Receipt Date: 20170623
  Transmission Date: 20170830
  Serious: Yes (Hospitalization)
  Sender: FDA-Public Use
  Company Number: PHHY2017CO077194

PATIENT
  Age: 71 Year
  Sex: Male
  Weight: 58 kg

DRUGS (4)
  1. ERYTHROPOIETIN [Concomitant]
     Active Substance: ERYTHROPOIETIN
     Indication: PRODUCT USED FOR UNKNOWN INDICATION
     Route: 065
  2. AFINITOR [Suspect]
     Active Substance: EVEROLIMUS
     Indication: RENAL CELL CARCINOMA
     Dosage: 10 MG, QD
     Route: 048
     Dates: start: 20161115, end: 20170424
  3. LEVOTHYROXINE. [Concomitant]
     Active Substance: LEVOTHYROXINE
     Indication: PRODUCT USED FOR UNKNOWN INDICATION
     Route: 065
  4. COMPLEX B [Concomitant]
     Active Substance: CALCIUM PANTOTHENATE\CYANOCOBALAMIN\NIACINAMIDE\PYRIDOXINE HYDROCHLORIDE\RIBOFLAVIN\THIAMINE MONONITRATE
     Indication: PRODUCT USED FOR UNKNOWN INDICATION
     Route: 065

REACTIONS (10)
  - Haemoglobin decreased [Unknown]
  - Somnolence [Unknown]
  - Tremor [Unknown]
  - Vomiting [Recovered/Resolved]
  - Oedema peripheral [Unknown]
  - Decreased appetite [Not Recovered/Not Resolved]
  - General physical health deterioration [Unknown]
  - Diarrhoea [Recovered/Resolved]
  - Drug intolerance [Unknown]
  - Depressed mood [Unknown]

NARRATIVE: CASE EVENT DATE: 201704
